FAERS Safety Report 5324138-X (Version None)
Quarter: 2007Q2

REPORT INFORMATION
  Report Type: 
  Country: None (occurrence: None)
  Receive Date: 20070514
  Receipt Date: 20061127
  Transmission Date: 20071010
  Serious: No
  Sender: FDA-Public Use
  Company Number: A0628723A

PATIENT
  Sex: Female

DRUGS (3)
  1. NABUMETONE [Suspect]
     Indication: FIBROMYALGIA
     Dosage: 500MG TWICE PER DAY
     Route: 048
  2. THYROID TAB [Concomitant]
  3. UNSPECIFIED MEDICATION [Concomitant]
     Indication: BLADDER DISORDER

REACTIONS (3)
  - ASTHENIA [None]
  - DEPRESSION [None]
  - DRUG INEFFECTIVE [None]
